FAERS Safety Report 7647658-1 (Version None)
Quarter: 2011Q3

REPORT INFORMATION
  Report Type: 
  Country: None (occurrence: None)
  Receive Date: 20110801
  Receipt Date: 20110801
  Transmission Date: 20111222
  Serious: Yes (Life-Threatening, Hospitalization, Other)
  Sender: FDA-Public Use
  Company Number: None

PATIENT
  Age: 27 Year
  Sex: Male
  Weight: 67.585 kg

DRUGS (2)
  1. GABITRIL [Suspect]
     Indication: SCHIZOPHRENIA, PARANOID TYPE
  2. ABILIFY [Concomitant]
     Indication: DEPRESSION

REACTIONS (6)
  - PSYCHOTIC DISORDER [None]
  - LIPOMA [None]
  - VISION BLURRED [None]
  - AMNESIA [None]
  - LOSS OF CONSCIOUSNESS [None]
  - STRESS [None]
